FAERS Safety Report 23576403 (Version 3)
Quarter: 2024Q2

REPORT INFORMATION
  Report Type: Spontaneous
  Country: US (occurrence: US)
  Receive Date: 20240228
  Receipt Date: 20240411
  Transmission Date: 20240716
  Serious: No
  Sender: FDA-Public Use
  Company Number: US-PFIZER INC-PV202400027792

PATIENT
  Age: 50 Year
  Sex: Male

DRUGS (1)
  1. INLYTA [Suspect]
     Active Substance: AXITINIB
     Dosage: 5 MG

REACTIONS (9)
  - Product dose omission issue [Unknown]
  - Fatigue [Unknown]
  - Depressed mood [Unknown]
  - Asthenia [Unknown]
  - Pain [Unknown]
  - Decreased appetite [Unknown]
  - Nausea [Unknown]
  - Decreased interest [Unknown]
  - Anhedonia [Unknown]
